FAERS Safety Report 8561605-X (Version None)
Quarter: 2012Q3

REPORT INFORMATION
  Report Type: 
  Country: None (occurrence: None)
  Receive Date: 20120727
  Receipt Date: 20120727
  Transmission Date: 20120928
  Serious: Yes (Hospitalization)
  Sender: FDA-Public Use
  Company Number: None

PATIENT
  Age: 60 Year
  Sex: Female
  Weight: 75.8 kg

DRUGS (15)
  1. TAB-A-VITE [Concomitant]
  2. LITHIUM CARBONATE [Suspect]
     Indication: SCHIZOPHRENIA
     Dosage: 450 MG, QHS, PO CHRONIC
     Route: 048
  3. GABAPENTIN [Concomitant]
  4. PRILOSEC [Concomitant]
  5. SEROQUEL [Concomitant]
  6. CLOZARIL [Suspect]
     Indication: SCHIZOPHRENIA
     Dosage: 200 MG,BID, PO CHRONIC
     Route: 048
  7. ASPIRIN [Concomitant]
  8. CLONIDINE [Concomitant]
  9. DOCUSATE - SENNA [Concomitant]
  10. QVAR 40 [Concomitant]
  11. VIT E [Concomitant]
  12. SPIRIVA [Concomitant]
  13. CLOZARIL [Concomitant]
  14. LORAZEPAM [Concomitant]
  15. LOSARTAN POTASSIUM [Concomitant]

REACTIONS (6)
  - TREMOR [None]
  - RENAL FAILURE ACUTE [None]
  - URINARY TRACT INFECTION [None]
  - DYSKINESIA [None]
  - ANTIPSYCHOTIC DRUG LEVEL INCREASED [None]
  - GRANULOCYTOPENIA [None]
